FAERS Safety Report 6458738-0 (Version None)
Quarter: 2009Q4

REPORT INFORMATION
  Report Type: 
  Country: None (occurrence: None)
  Receive Date: 20091127
  Receipt Date: 20091116
  Transmission Date: 20100525
  Serious: Yes (Hospitalization)
  Sender: FDA-Public Use
  Company Number: FR-ROCHE-669288

PATIENT
  Sex: Female

DRUGS (7)
  1. CAPECITABINE [Suspect]
     Indication: GASTRIC CANCER
     Dosage: FREQUENCY: DAY 2 TO DAY 15.
     Route: 048
  2. EPIRUBICIN [Suspect]
     Indication: GASTRIC CANCER
     Dosage: FREQUENCY: ON DAY ONE OF CYCLE.
     Route: 065
  3. CISPLATIN [Suspect]
     Indication: GASTRIC CANCER
     Dosage: FREQUENCY: OM DAY 1 OF CYCLE.
     Route: 042
  4. EMEND [Concomitant]
  5. ZOPHREN [Concomitant]
  6. VOGALENE [Concomitant]
     Dosage: TDD: IF REQUIRED.
  7. PLITICAN [Concomitant]
     Dosage: TDD: IF REQUIRED.

REACTIONS (1)
  - METASTASES TO PERITONEUM [None]
